FAERS Safety Report 24593148 (Version 1)
Quarter: 2024Q4

REPORT INFORMATION
  Report Type: Spontaneous
  Country: US (occurrence: None)
  Receive Date: 20241107
  Receipt Date: 20241107
  Transmission Date: 20250114
  Serious: No
  Sender: Public
  Company Number: None

PATIENT
  Age: 82 Year
  Sex: Male
  Weight: 61 kg

DRUGS (3)
  1. SULFAMETHOXAZOLE AND TRIMETHOPRIM [Suspect]
     Active Substance: SULFAMETHOXAZOLE\TRIMETHOPRIM
     Indication: Abscess limb
     Dosage: 1.00 UNK -  UNKNWN TWICE A DAY ORAL
     Route: 048
  2. LISINOPRIL [Suspect]
     Active Substance: LISINOPRIL
  3. SPIRONOLACTONE [Suspect]
     Active Substance: SPIRONOLACTONE

REACTIONS (4)
  - Blood creatinine increased [None]
  - Hyperkalaemia [None]
  - Refusal of treatment by patient [None]
  - Therapy cessation [None]

NARRATIVE: CASE EVENT DATE: 20240625
